FAERS Safety Report 11772363 (Version 1)
Quarter: 2015Q4

REPORT INFORMATION
  Report Type: Spontaneous
  Country: ES (occurrence: ES)
  Receive Date: 20151124
  Receipt Date: 20151124
  Transmission Date: 20160304
  Serious: Yes (Other)
  Sender: FDA-Public Use
  Company Number: ES-GLAXOSMITHKLINE-ES2015GSK166095

PATIENT
  Age: 66 Year
  Sex: Female

DRUGS (4)
  1. ATORVASTATIN [Concomitant]
     Active Substance: ATORVASTATIN
  2. CEFUROXIME. [Suspect]
     Active Substance: CEFUROXIME
     Indication: URINARY TRACT INFECTION
  3. OLMESARTAN [Concomitant]
     Active Substance: OLMESARTAN
  4. PANTOPRAZOLE [Concomitant]
     Active Substance: PANTOPRAZOLE SODIUM

REACTIONS (6)
  - Vascular injury [Unknown]
  - Skin lesion [Unknown]
  - Hypersensitivity vasculitis [Unknown]
  - Rash pruritic [Unknown]
  - Skin hyperpigmentation [Recovered/Resolved with Sequelae]
  - Rash papular [Unknown]
